FAERS Safety Report 4684722-3 (Version None)
Quarter: 2005Q2

REPORT INFORMATION
  Report Type: 
  Country: None (occurrence: None)
  Receive Date: 20050603
  Receipt Date: 20050601
  Transmission Date: 20051028
  Serious: Yes (Other)
  Sender: FDA-Public Use
  Company Number: 2005-04-0057

PATIENT
  Age: 57 Year
  Sex: Male
  Weight: 72.5755 kg

DRUGS (6)
  1. CLARITIN-D [Suspect]
     Indication: NASOPHARYNGITIS
     Dosage: 1 TAB QD ORAL
     Route: 048
     Dates: start: 20050319, end: 20050325
  2. LIPITOR [Concomitant]
  3. LOPRESSOR [Concomitant]
  4. FLOMAX [Concomitant]
  5. SERENOA REPENS (SAW PALMETTO) [Concomitant]
  6. CIPRO X1 [Concomitant]

REACTIONS (4)
  - ANURIA [None]
  - BLOOD URINE PRESENT [None]
  - DYSURIA [None]
  - URINARY RETENTION [None]
